FAERS Safety Report 7552126-1 (Version None)
Quarter: 2011Q2

REPORT INFORMATION
  Report Type: 
  Country: None (occurrence: None)
  Receive Date: 20110616
  Receipt Date: 20110609
  Transmission Date: 20111010
  Serious: Yes (Other)
  Sender: FDA-Public Use
  Company Number: US-US-EMD SERONO, INC.-7056230

PATIENT
  Sex: Male

DRUGS (3)
  1. REBIF [Suspect]
     Indication: MULTIPLE SCLEROSIS
     Route: 058
     Dates: start: 20110126, end: 20110201
  2. GABAPENTIN [Concomitant]
     Indication: MULTIPLE SCLEROSIS
  3. MELOXICAM [Concomitant]
     Indication: MULTIPLE SCLEROSIS

REACTIONS (1)
  - LYMPHOMA [None]
